FAERS Safety Report 14635469 (Version 1)
Quarter: 2018Q1

REPORT INFORMATION
  Report Type: Spontaneous
  Country: US (occurrence: US)
  Receive Date: 20180314
  Receipt Date: 20180314
  Transmission Date: 20180509
  Serious: No
  Sender: FDA-Public Use
  Company Number: US-ASTRAZENECA-2018SE28033

PATIENT
  Sex: Male
  Weight: 108.9 kg

DRUGS (3)
  1. GLIMEPIRIDE. [Concomitant]
     Active Substance: GLIMEPIRIDE
     Dosage: 1.0MG UNKNOWN
     Route: 048
  2. BYDUREON [Suspect]
     Active Substance: EXENATIDE
     Indication: BLOOD GLUCOSE INCREASED
     Route: 058
  3. GLIMEPIRIDE. [Concomitant]
     Active Substance: GLIMEPIRIDE
     Dosage: HALF TABLET OF 1 MG UNKNOWN
     Route: 048

REACTIONS (2)
  - Blood glucose increased [Unknown]
  - Wrong technique in device usage process [Unknown]
